FAERS Safety Report 8119019-2 (Version None)
Quarter: 2012Q1

REPORT INFORMATION
  Report Type: 
  Country: None (occurrence: None)
  Receive Date: 20120207
  Receipt Date: 20120125
  Transmission Date: 20120608
  Serious: Yes (Hospitalization)
  Sender: FDA-Public Use
  Company Number: US-ELI_LILLY_AND_COMPANY-US201110004665

PATIENT
  Sex: Female

DRUGS (48)
  1. FORTEO [Suspect]
     Dosage: 20 UG, QD
  2. SOMA [Concomitant]
  3. BENZONATATE [Concomitant]
  4. METOPROLOL SUCCINATE [Concomitant]
  5. FORTEO [Suspect]
     Dosage: 20 UG, QD
  6. ASPIRIN [Concomitant]
     Dosage: 81 MG, QD
  7. CALCIUM [Concomitant]
  8. ANALGESICS [Concomitant]
     Dosage: UNK, QD
  9. MUCINEX [Concomitant]
  10. ACETAMINOPHEN [Concomitant]
  11. VALTREX [Concomitant]
  12. DITROPAN [Concomitant]
  13. HYDROCODONE BITARTRATE [Concomitant]
  14. TOPROL-XL [Concomitant]
  15. REQUIP [Concomitant]
     Indication: RESTLESS LEGS SYNDROME
  16. IRON [Concomitant]
  17. FOLIC ACID [Concomitant]
  18. ATROVENT [Concomitant]
  19. WELCHOL [Concomitant]
  20. FORTEO [Suspect]
     Indication: OSTEOPOROSIS
     Dosage: 20 UG, QD
     Dates: start: 20110101, end: 20110926
  21. LOSARTAN POTASSIUM [Concomitant]
     Indication: BLOOD PRESSURE
  22. FORTEO [Suspect]
     Dosage: 20 UG, QD
     Dates: end: 20111104
  23. FORTEO [Suspect]
     Dosage: 20 UG, QD
  24. NEXIUM [Concomitant]
  25. VITAMIN D [Concomitant]
  26. NIFEREX-150 FORTE [Concomitant]
  27. NORVASC [Concomitant]
  28. PRILOSEC [Concomitant]
  29. LYRICA [Concomitant]
     Dosage: 100 MG, TID
  30. MULTI-VITAMIN [Concomitant]
  31. FLEXERIL [Concomitant]
     Dosage: 5 MG, BID
  32. CLARITIN [Concomitant]
  33. VITAMIN D [Concomitant]
  34. DUONEB [Concomitant]
     Indication: DYSPNOEA
  35. VITAMIN B-12 [Concomitant]
  36. LEVOTHYROXINE SODIUM [Concomitant]
  37. METHOTREXATE [Concomitant]
     Dosage: 5 MG, 2/W
  38. ADVAIR DISKUS 100/50 [Concomitant]
  39. FENTANYL CITRATE [Concomitant]
     Dosage: 25 MG, UNK
  40. SYNTHROID [Concomitant]
  41. ISOPTO HOMATROPINE [Concomitant]
  42. NORCO [Concomitant]
  43. CYMBALTA [Concomitant]
     Dosage: 60 MG, BID
  44. OXYBUTYNIN [Concomitant]
  45. PREDNISONE TAB [Concomitant]
     Dosage: 5 MG, BID
  46. ANALGESICS [Concomitant]
     Indication: PAIN
     Dosage: UNK, UNKNOWN
  47. MULTIPLE VITAMIN [Concomitant]
  48. OS-CAL 500 + D [Concomitant]

REACTIONS (20)
  - MALAISE [None]
  - UNRESPONSIVE TO STIMULI [None]
  - HAEMORRHAGE [None]
  - HIATUS HERNIA [None]
  - ASTHENIA [None]
  - OEDEMA PERIPHERAL [None]
  - BACK PAIN [None]
  - HYPOPHAGIA [None]
  - CONSTIPATION [None]
  - DYSPNOEA [None]
  - CHEST PAIN [None]
  - HOSPITALISATION [None]
  - DEHYDRATION [None]
  - COUGH [None]
  - PAIN [None]
  - AGGRESSION [None]
  - HYPERTENSION [None]
  - MENTAL STATUS CHANGES [None]
  - DRY MOUTH [None]
  - DIARRHOEA [None]
